FAERS Safety Report 7607970-9 (Version None)
Quarter: 2011Q3

REPORT INFORMATION
  Report Type: 
  Country: None (occurrence: None)
  Receive Date: 20110714
  Receipt Date: 20110711
  Transmission Date: 20111222
  Serious: No
  Sender: FDA-Public Use
  Company Number: US-PFIZER INC-2011156880

PATIENT
  Sex: Female

DRUGS (3)
  1. LIPITOR [Suspect]
     Dosage: 40MG, UNK
  2. LIPITOR [Suspect]
     Dosage: UNK
  3. LIPITOR [Suspect]
     Dosage: 20MG, UNK
     Dates: start: 20010101

REACTIONS (3)
  - MALAISE [None]
  - PAIN [None]
  - INFLUENZA [None]
